FAERS Safety Report 11812397 (Version 4)
Quarter: 2016Q4

REPORT INFORMATION
  Report Type: Spontaneous
  Country: CN (occurrence: CN)
  Receive Date: 20151208
  Receipt Date: 20161007
  Transmission Date: 20170206
  Serious: Yes (Hospitalization, Other)
  Sender: FDA-Public Use
  Company Number: CN-GILEAD-2015-0185947

PATIENT
  Age: 55 Year
  Sex: Male

DRUGS (4)
  1. HEPSERA [Suspect]
     Active Substance: ADEFOVIR DIPIVOXIL
     Indication: ANTIVIRAL TREATMENT
     Dosage: 20 MG, QD
     Route: 065
  2. HEPSERA [Suspect]
     Active Substance: ADEFOVIR DIPIVOXIL
     Indication: CHRONIC HEPATITIS B
     Dosage: 10 MG, QD
     Route: 065
  3. LAMIVUDINE. [Suspect]
     Active Substance: LAMIVUDINE
     Indication: ANTIVIRAL TREATMENT
  4. LAMIVUDINE. [Suspect]
     Active Substance: LAMIVUDINE
     Indication: ALANINE AMINOTRANSFERASE INCREASED
     Dosage: 100 MG, QD
     Route: 065

REACTIONS (19)
  - Metabolic acidosis [Recovered/Resolved]
  - Chronic kidney disease-mineral and bone disorder [Recovered/Resolved]
  - Blood alkaline phosphatase increased [Unknown]
  - Arthralgia [Recovered/Resolved]
  - Fatigue [Recovering/Resolving]
  - Fanconi syndrome [Recovered/Resolved]
  - Drug resistance [Unknown]
  - Fanconi syndrome [Unknown]
  - Malaise [Recovering/Resolving]
  - Hepatic function abnormal [Recovered/Resolved]
  - Overdose [Recovered/Resolved]
  - Gait disturbance [Recovered/Resolved]
  - Hypophosphataemia [Unknown]
  - Proteinuria [Recovered/Resolved]
  - Movement disorder [Recovering/Resolving]
  - Osteomalacia [Unknown]
  - Bone pain [Recovering/Resolving]
  - Vitamin D deficiency [Unknown]
  - Viral mutation identified [Recovered/Resolved]

NARRATIVE: CASE EVENT DATE: 2006
